FAERS Safety Report 14308852 (Version 1)
Quarter: 2017Q4

REPORT INFORMATION
  Report Type: Spontaneous
  Country: US (occurrence: US)
  Receive Date: 20171219
  Receipt Date: 20171219
  Transmission Date: 20180321
  Serious: Yes (Hospitalization)
  Sender: FDA-Public Use
  Company Number: None

PATIENT
  Age: 73 Year
  Sex: Male
  Weight: 112.4 kg

DRUGS (1)
  1. WARFARIN [Suspect]
     Active Substance: WARFARIN
     Indication: ATRIAL FIBRILLATION
     Route: 048
     Dates: start: 20090211

REACTIONS (6)
  - Anticoagulation drug level above therapeutic [None]
  - Haemoglobin decreased [None]
  - Gastric haemorrhage [None]
  - Orthostatic hypotension [None]
  - Chronic obstructive pulmonary disease [None]
  - Hypophagia [None]

NARRATIVE: CASE EVENT DATE: 20120625
